FAERS Safety Report 16584614 (Version 7)
Quarter: 2019Q4

REPORT INFORMATION
  Report Type: Report from Study
  Country: IT (occurrence: IT)
  Receive Date: 20190717
  Receipt Date: 20191213
  Transmission Date: 20200122
  Serious: Yes (Hospitalization, Other)
  Sender: FDA-Public Use
  Company Number: IT-AEGERION PHARMACEUTICAL, INC-AEGR004386

PATIENT
  Age: 7 Year
  Sex: Female

DRUGS (21)
  1. AMLODIPINE [Concomitant]
     Active Substance: AMLODIPINE BESYLATE
     Indication: LYMPHOPROLIFERATIVE DISORDER
  2. ACYCLOVIR                          /00587301/ [Concomitant]
     Active Substance: ACYCLOVIR
     Indication: LYMPHOPROLIFERATIVE DISORDER
  3. MYALEPT [Suspect]
     Active Substance: METRELEPTIN
     Indication: LIPODYSTROPHY ACQUIRED
     Dosage: 2 MG, QD
     Route: 058
     Dates: start: 20150713, end: 20190526
  4. SIROLIMUS. [Concomitant]
     Active Substance: SIROLIMUS
     Dosage: 2 MG, BID
  5. AMLODIPINE [Concomitant]
     Active Substance: AMLODIPINE BESYLATE
     Indication: BONE MARROW TRANSPLANT
     Dosage: 2.5 MG, QD
  6. DELTACORTENE [Concomitant]
     Active Substance: PREDNISONE
     Indication: BONE MARROW TRANSPLANT
     Dosage: 6.25 MG, QD
  7. CHOLECALCIFEROL [Concomitant]
     Active Substance: CHOLECALCIFEROL
     Indication: PRODUCT USED FOR UNKNOWN INDICATION
     Dosage: 6 GTT, QD
  8. FOLIN                              /00024201/ [Concomitant]
     Active Substance: FOLIC ACID
     Indication: PRODUCT USED FOR UNKNOWN INDICATION
     Dosage: 5 MG, QD
  9. ASCORBIC ACID. [Concomitant]
     Active Substance: ASCORBIC ACID
     Indication: PRODUCT USED FOR UNKNOWN INDICATION
     Dosage: 10 UNK, UNK
  10. POTASSIUM [Concomitant]
     Active Substance: POTASSIUM
     Indication: PRODUCT USED FOR UNKNOWN INDICATION
     Dosage: 1 G, QD
  11. FLUCONAZOLE. [Concomitant]
     Active Substance: FLUCONAZOLE
     Indication: BONE MARROW TRANSPLANT
     Dosage: 100 MG, QD
  12. MYALEPT [Suspect]
     Active Substance: METRELEPTIN
     Dosage: 3.0 MG, QD
     Route: 058
     Dates: start: 20190527
  13. COTRIMOXAZOLE [Concomitant]
     Active Substance: SULFAMETHOXAZOLE\TRIMETHOPRIM
     Indication: BONE MARROW TRANSPLANT
     Dosage: 80 MG, 2 TIMES PER WEEK
  14. ACYCLOVIR                          /00587301/ [Concomitant]
     Active Substance: ACYCLOVIR
     Indication: BONE MARROW TRANSPLANT
     Dosage: 200 MG, TID
  15. OMEPRAZOLE. [Concomitant]
     Active Substance: OMEPRAZOLE
     Indication: PRODUCT USED FOR UNKNOWN INDICATION
     Dosage: 20 MG, QD
  16. CALCIUM CARBONATE. [Concomitant]
     Active Substance: CALCIUM CARBONATE
     Indication: LYMPHOPROLIFERATIVE DISORDER
  17. SIROLIMUS. [Concomitant]
     Active Substance: SIROLIMUS
     Indication: BONE MARROW TRANSPLANT
     Dosage: 3.5 MG, QD
  18. COTRIMOXAZOLE [Concomitant]
     Active Substance: SULFAMETHOXAZOLE\TRIMETHOPRIM
     Indication: LYMPHOPROLIFERATIVE DISORDER
  19. FIBRATES [Concomitant]
     Active Substance: UNSPECIFIED INGREDIENT
     Indication: HYPERTRIGLYCERIDAEMIA
     Dosage: 145 MG, QD
     Dates: start: 20190710
  20. CALCIUM CARBONATE. [Concomitant]
     Active Substance: CALCIUM CARBONATE
     Indication: BONE MARROW TRANSPLANT
     Dosage: 500 MG, QD
  21. DALBAVANCIN. [Concomitant]
     Active Substance: DALBAVANCIN
     Indication: BONE MARROW TRANSPLANT
     Dosage: 450 MG, EVERY 20 DAYS

REACTIONS (16)
  - Drug ineffective [Unknown]
  - Hepatic steatosis [Unknown]
  - Insulin resistance [Unknown]
  - Diabetes mellitus [Unknown]
  - Myelitis [Recovered/Resolved]
  - Glycosylated haemoglobin increased [Unknown]
  - Metabolic disorder [Unknown]
  - Osteomyelitis acute [Recovered/Resolved]
  - Blood triglycerides increased [Unknown]
  - Neutralising antibodies positive [Unknown]
  - Ear infection [Recovered/Resolved]
  - Hyperphagia [Unknown]
  - Condition aggravated [Unknown]
  - Irritability [Unknown]
  - Aggression [Unknown]
  - Sepsis [Recovered/Resolved]

NARRATIVE: CASE EVENT DATE: 20170811
